FAERS Safety Report 9901284 (Version 3)
Quarter: 2014Q4

REPORT INFORMATION
  Report Type: Spontaneous
  Country: US (occurrence: US)
  Receive Date: 20140217
  Receipt Date: 20141117
  Transmission Date: 20150529
  Serious: Yes (Other)
  Sender: FDA-Public Use
  Company Number: US-BAYER-2014-024333

PATIENT
  Age: 30 Year
  Sex: Female
  Weight: 63.49 kg

DRUGS (3)
  1. TOPAMAX [Concomitant]
     Active Substance: TOPIRAMATE
     Route: 048
  2. LEXAPRO [Concomitant]
     Active Substance: ESCITALOPRAM OXALATE
     Route: 048
  3. MIRENA [Suspect]
     Active Substance: LEVONORGESTREL
     Indication: CONTRACEPTION
     Dosage: 20 MCG/24HR, CONT
     Route: 015
     Dates: start: 20081215, end: 20100304

REACTIONS (8)
  - Injury [None]
  - Medical device discomfort [None]
  - Scar [None]
  - Device failure [None]
  - Device issue [None]
  - Embedded device [None]
  - Pain [None]
  - Procedural pain [None]

NARRATIVE: CASE EVENT DATE: 201003
